FAERS Safety Report 18084814 (Version 1)
Quarter: 2020Q3

REPORT INFORMATION
  Report Type: Spontaneous
  Country: GB (occurrence: GB)
  Receive Date: 20200729
  Receipt Date: 20200729
  Transmission Date: 20201103
  Serious: Yes (Other)
  Sender: FDA-Public Use
  Company Number: GB-TEVA-2020-GB-1805765

PATIENT
  Age: 76 Year
  Sex: Female
  Weight: 69 kg

DRUGS (15)
  1. CASSIA [Concomitant]
     Dosage: 1 DOSAGE FORMS DAILY; TAKE ONE OR TWO TABLETS ONCE A DAY AT BEDTIME
     Dates: start: 20200526, end: 20200623
  2. CODEINE PHOSPHATE [Concomitant]
     Active Substance: CODEINE PHOSPHATE
     Dosage: ONE OR TWO TABLETS TO BE TAKEN EVERY 4 HOURS
     Dates: start: 20200518
  3. PARACETAMOL [Concomitant]
     Active Substance: ACETAMINOPHEN
     Dosage: 2 DOSAGE FORM
     Dates: start: 20200305
  4. SIMVADOR [Concomitant]
     Active Substance: SIMVASTATIN
     Dosage: 1 DOSAGE FORMS DAILY; AT NIGHT
     Dates: start: 20200305
  5. METFORMIN [Concomitant]
     Active Substance: METFORMIN HYDROCHLORIDE
     Dosage: 1 DOSAGEFORM
     Dates: start: 20200305
  6. NITROFURANTOIN. [Concomitant]
     Active Substance: NITROFURANTOIN
     Dosage: FOR 3 DAYS:UNIT DOSE :2 DOSAGEFORM
     Dates: start: 20200612, end: 20200615
  7. ENALAPRIL [Concomitant]
     Active Substance: ENALAPRIL
     Dosage: 1 DOSAGE FORM
     Dates: start: 20200305
  8. TRIMETHOPRIM. [Suspect]
     Active Substance: TRIMETHOPRIM
     Dosage: FOR 7 DAYS: 400 MILLIGRAM
     Dates: start: 20200630
  9. CAPSAICIN. [Concomitant]
     Active Substance: CAPSAICIN
     Dosage: 6 DOSAGE FORMS DAILY; APPLY PEA SIZED AMOUNT 4 HOURLY DURING WAKING
     Dates: start: 20200305
  10. CEFALEXIN [Concomitant]
     Active Substance: CEPHALEXIN
     Dosage: 2 DOSAGE FORM
     Dates: start: 20200616, end: 20200623
  11. LAXIDO [Concomitant]
     Active Substance: POLYETHYLENE GLYCOL 3350\POTASSIUM CHLORIDE\SODIUM BICARBONATE\SODIUM CHLORIDE
     Dosage: (MACROGOL) THE CONTENTS OF ONE OR TWO SACHETS
     Dates: start: 20200526, end: 20200625
  12. PREGABALIN. [Concomitant]
     Active Substance: PREGABALIN
     Dosage: 2 DOSAGE FORM
     Dates: start: 20200526, end: 20200623
  13. DOCUSATE SODIUM. [Concomitant]
     Active Substance: DOCUSATE SODIUM
     Dosage: TAKE ONE OR TWO CAPSULES TWICE A DAY
     Dates: start: 20200526, end: 20200623
  14. PIVMECILLINAM [Concomitant]
     Active Substance: AMDINOCILLIN PIVOXIL
     Dosage: TAKE TWO TABLETS FOR THE FIRST DOSE, THEN ONE
     Dates: start: 20200703
  15. BENDROFLUMETHIAZIDE [Concomitant]
     Active Substance: BENDROFLUMETHIAZIDE
     Dosage: 1 DOSAGE FORMS DAILY; EACH MORNING
     Dates: start: 20200305

REACTIONS (2)
  - Diarrhoea [Recovering/Resolving]
  - Paraesthesia [Recovering/Resolving]

NARRATIVE: CASE EVENT DATE: 20200702
